FAERS Safety Report 7386692-6 (Version None)
Quarter: 2011Q1

REPORT INFORMATION
  Report Type: 
  Country: None (occurrence: None)
  Receive Date: 20110331
  Receipt Date: 20110309
  Transmission Date: 20110831
  Serious: Yes (Hospitalization, Other)
  Sender: FDA-Public Use
  Company Number: US-BAYER-2011-026204

PATIENT
  Age: 46 Year
  Sex: Female

DRUGS (1)
  1. MOXIFLOXACIN [Suspect]
     Indication: PRODUCT USED FOR UNKNOWN INDICATION

REACTIONS (7)
  - LIVER DISORDER [None]
  - RASH [None]
  - VANISHING BILE DUCT SYNDROME [None]
  - EOSINOPHILIA [None]
  - JAUNDICE [None]
  - PYREXIA [None]
  - HEPATIC FAILURE [None]
